FAERS Safety Report 10669825 (Version 4)
Quarter: 2015Q1

REPORT INFORMATION
  Report Type: Report from Study
  Country: US (occurrence: US)
  Receive Date: 20141222
  Receipt Date: 20150223
  Transmission Date: 20150720
  Serious: Yes (Hospitalization, Other)
  Sender: FDA-Public Use
  Company Number: US-GILEAD-2014-0127767

PATIENT
  Age: 85 Year
  Sex: Male

DRUGS (5)
  1. IDELALISIB [Suspect]
     Active Substance: IDELALISIB
     Indication: LYMPHOMA
     Dosage: 150 MG, UNK
     Route: 048
     Dates: start: 20141110, end: 20141213
  2. METOPROLOL [Concomitant]
     Active Substance: METOPROLOL
     Indication: HYPERTENSION
     Dosage: UNK
     Route: 048
  3. IDELALISIB [Suspect]
     Active Substance: IDELALISIB
     Dosage: 150 MG, BID
     Route: 048
     Dates: start: 20141220, end: 20150105
  4. IDELALISIB [Suspect]
     Active Substance: IDELALISIB
     Dosage: 150 UNK, UNK
     Route: 048
     Dates: start: 20150115
  5. PREDNISONE. [Concomitant]
     Active Substance: PREDNISONE
     Indication: CHRONIC OBSTRUCTIVE PULMONARY DISEASE
     Dosage: UNK
     Route: 048
     Dates: start: 20141204

REACTIONS (12)
  - Sputum discoloured [Unknown]
  - Insomnia [Unknown]
  - Atrial fibrillation [Recovered/Resolved]
  - Pneumonia [Unknown]
  - Pneumonitis [Unknown]
  - Oedema peripheral [Unknown]
  - Productive cough [Unknown]
  - Confusional state [Unknown]
  - Tremor [Unknown]
  - Dyspnoea [Unknown]
  - Chronic obstructive pulmonary disease [Unknown]
  - Blood pressure increased [Unknown]

NARRATIVE: CASE EVENT DATE: 20141201
